FAERS Safety Report 5664006-7 (Version None)
Quarter: 2008Q1

REPORT INFORMATION
  Report Type: 
  Country: None (occurrence: None)
  Receive Date: 20080314
  Receipt Date: 20080303
  Transmission Date: 20080703
  Serious: Yes (Hospitalization)
  Sender: FDA-Public Use
  Company Number: JP-BAYER-200710102BYL

PATIENT
  Age: 88 Year
  Sex: Male

DRUGS (38)
  1. CIPROXAN-I.V.300 [Suspect]
     Indication: PNEUMONIA
     Dosage: UNIT DOSE: 300 MG
     Route: 042
     Dates: start: 20070127, end: 20070130
  2. FUNGUARD [Suspect]
     Indication: PNEUMONIA
     Dosage: TOTAL DAILY DOSE: 100 MG  UNIT DOSE: 50 MG
     Route: 041
     Dates: start: 20070127, end: 20070130
  3. CALONAL [Concomitant]
     Dosage: UNIT DOSE: 200 MG
     Route: 048
     Dates: start: 20070106, end: 20070115
  4. ALPINY [Concomitant]
     Dosage: TOTAL DAILY DOSE: 200 MG  UNIT DOSE: 200 MG
     Route: 054
     Dates: start: 20070106, end: 20070115
  5. CABERGOLINE [Concomitant]
     Dosage: TOTAL DAILY DOSE: 2.0 MG  UNIT DOSE: 1 MG
     Route: 048
     Dates: start: 20070112, end: 20070128
  6. CABERGOLINE [Concomitant]
     Dosage: TOTAL DAILY DOSE: 4.0 MG  UNIT DOSE: 1 MG
     Route: 048
     Dates: start: 20070129, end: 20070201
  7. CABERGOLINE [Concomitant]
     Dosage: TOTAL DAILY DOSE: 2.0 MG  UNIT DOSE: 1 MG
     Route: 048
     Dates: start: 20070106, end: 20070110
  8. TAKEPRON [Concomitant]
     Dosage: TOTAL DAILY DOSE: 15 MG  UNIT DOSE: 15 MG
     Route: 048
     Dates: start: 20070106, end: 20070127
  9. TAKEPRON [Concomitant]
     Dosage: TOTAL DAILY DOSE: 30 MG  UNIT DOSE: 15 MG
     Route: 048
     Dates: start: 20070128, end: 20070201
  10. LASIX [Concomitant]
     Dosage: TOTAL DAILY DOSE: 40 MG  UNIT DOSE: 40 MG
     Route: 048
     Dates: start: 20070106, end: 20070201
  11. LASIX [Concomitant]
     Dosage: TOTAL DAILY DOSE: 40 MG  UNIT DOSE: 40 MG
     Route: 048
     Dates: start: 20070129, end: 20070208
  12. ALDACTONE [Concomitant]
     Dosage: TOTAL DAILY DOSE: 25 MG  UNIT DOSE: 25 MG
     Route: 048
     Dates: start: 20070106, end: 20070208
  13. MUCOSOLVAN [Concomitant]
     Dosage: TOTAL DAILY DOSE: 60 MG  UNIT DOSE: 15 MG
     Route: 048
     Dates: start: 20070106, end: 20070208
  14. MUCODYNE [Concomitant]
     Dosage: TOTAL DAILY DOSE: 750 MG  UNIT DOSE: 250 MG
     Route: 048
     Dates: start: 20070106, end: 20070208
  15. MUCODYNE [Concomitant]
     Route: 048
     Dates: start: 20070129, end: 20070208
  16. CARBIDOPA AND LEVODOPA [Concomitant]
     Dosage: TOTAL DAILY DOSE: 300 MG  UNIT DOSE: 100 MG
     Route: 048
     Dates: start: 20070106, end: 20070201
  17. SIGMART [Concomitant]
     Dosage: TOTAL DAILY DOSE: 15 MG  UNIT DOSE: 5 MG
     Route: 048
     Dates: start: 20070106, end: 20070201
  18. ASTOMIN [Concomitant]
     Dosage: TOTAL DAILY DOSE: 30 MG  UNIT DOSE: 10 MG
     Route: 048
     Dates: start: 20070106, end: 20070201
  19. FRANDOL [Concomitant]
     Dosage: TOTAL DAILY DOSE: 40 MG  UNIT DOSE: 40 MG
     Route: 062
     Dates: start: 20070106, end: 20070208
  20. THEOLONG [Concomitant]
     Dosage: TOTAL DAILY DOSE: 200 MG  UNIT DOSE: 100 MG
     Route: 048
     Dates: start: 20070106, end: 20070201
  21. DIAZEPAM [Concomitant]
     Dosage: TOTAL DAILY DOSE: 2 MG  UNIT DOSE: 2 MG
     Route: 048
     Dates: start: 20070106, end: 20070201
  22. BIOFERMIN R [Concomitant]
     Route: 048
     Dates: start: 20070108, end: 20070208
  23. HOKUNALIN [Concomitant]
     Dosage: TOTAL DAILY DOSE: 2 MG  UNIT DOSE: 2 MG
     Route: 062
     Dates: start: 20070118, end: 20070208
  24. KAMAG G [Concomitant]
     Route: 048
     Dates: start: 20070124, end: 20070201
  25. ENSURE [Concomitant]
     Dosage: UNIT DOSE: 250 ML
     Route: 048
     Dates: start: 20070126, end: 20070208
  26. DOPS [Concomitant]
     Dosage: TOTAL DAILY DOSE: 300 MG  UNIT DOSE: 100 MG
     Route: 048
     Dates: start: 20070129, end: 20070204
  27. UNASYN [Concomitant]
     Dosage: UNIT DOSE: 1.5 G
     Route: 041
     Dates: start: 20070106, end: 20070110
  28. VEEN D [Concomitant]
     Dosage: UNIT DOSE: 500 ML
     Route: 041
     Dates: start: 20070106, end: 20070106
  29. VEEN D [Concomitant]
     Dosage: UNIT DOSE: 500 ML
     Route: 041
     Dates: start: 20070107, end: 20070110
  30. TIENAM [Concomitant]
     Dosage: UNIT DOSE: 0.5 G
     Route: 041
     Dates: start: 20070113, end: 20070121
  31. PRODIF [Concomitant]
     Dosage: UNIT DOSE: 200 MG
     Route: 042
     Dates: start: 20070113, end: 20070126
  32. VANCOMYCIN [Concomitant]
     Dosage: UNIT DOSE: 0.5 G
     Route: 041
     Dates: start: 20070121, end: 20070126
  33. SOLITA T [Concomitant]
     Dosage: UNIT DOSE: 200 ML
     Route: 041
     Dates: start: 20070121, end: 20070126
  34. AMINOFLUID [Concomitant]
     Dosage: UNIT DOSE: 500 ML
     Route: 041
     Dates: start: 20070130, end: 20070205
  35. AMINOFLUID [Concomitant]
     Dosage: UNIT DOSE: 500 ML
     Route: 041
     Dates: start: 20070121, end: 20070129
  36. OMEPRAL [Concomitant]
     Dosage: UNIT DOSE: 20 MG
     Route: 041
     Dates: start: 20070127, end: 20070130
  37. FESIN [Concomitant]
     Dosage: UNIT DOSE: 40 MG
     Route: 041
     Dates: start: 20070127, end: 20070205
  38. BISOLVON [Concomitant]
     Dosage: UNIT DOSE: 4 MG
     Route: 041
     Dates: start: 20070127, end: 20070129

REACTIONS (1)
  - INTERSTITIAL LUNG DISEASE [None]
